FAERS Safety Report 4550850-6 (Version None)
Quarter: 2004Q4

REPORT INFORMATION
  Report Type: 
  Country: None (occurrence: None)
  Receive Date: 20041217
  Receipt Date: 20041007
  Transmission Date: 20050328
  Serious: No
  Sender: FDA-Public Use
  Company Number: 2004-BP-09743BP(0)

PATIENT
  Age: 73 Year
  Sex: Female
  Weight: 113.4 kg

DRUGS (9)
  1. SPIRIVA [Suspect]
     Indication: CHRONIC OBSTRUCTIVE AIRWAYS DISEASE
     Dosage: 18 MCG (18 MCG), IH
     Route: 055
     Dates: start: 20040623
  2. SEREVENT [Suspect]
     Indication: CHRONIC OBSTRUCTIVE AIRWAYS DISEASE
  3. ZOLOFT [Concomitant]
  4. SINGULAIR (MONTELUKAST) [Concomitant]
  5. LEVOTHYROXINE SODIUM [Concomitant]
  6. HYDROCHLOROTHIAZIDE [Concomitant]
  7. AMBIEN [Concomitant]
  8. MAXAIR [Concomitant]
  9. SIMILASAN (SIMILASAN) [Concomitant]

REACTIONS (5)
  - DRY MOUTH [None]
  - EYE PAIN [None]
  - EYE REDNESS [None]
  - VISION BLURRED [None]
  - VISUAL ACUITY REDUCED [None]
